FAERS Safety Report 12275868 (Version 1)
Quarter: 2016Q2

REPORT INFORMATION
  Report Type: Spontaneous
  Country: US (occurrence: US)
  Receive Date: 20160418
  Receipt Date: 20160418
  Transmission Date: 20160815
  Serious: Yes (Other)
  Sender: FDA-Public Use
  Company Number: US-BEH-2016061159

PATIENT
  Sex: Female
  Weight: 58 kg

DRUGS (24)
  1. DIPHENHYDRAMINE. [Concomitant]
     Active Substance: DIPHENHYDRAMINE
  2. HYOSCYAMINE. [Concomitant]
     Active Substance: HYOSCYAMINE
  3. GAS-X [Concomitant]
     Active Substance: DIMETHICONE
  4. TESSALON [Concomitant]
     Active Substance: BENZONATATE
  5. ASPIRIN. [Concomitant]
     Active Substance: ASPIRIN
  6. POTASSIUM [Concomitant]
     Active Substance: POTASSIUM
  7. VITAMIN D [Concomitant]
     Active Substance: CHOLECALCIFEROL
  8. SPIRIVA [Concomitant]
     Active Substance: TIOTROPIUM BROMIDE MONOHYDRATE
  9. PANTOPRAZOLE [Concomitant]
     Active Substance: PANTOPRAZOLE SODIUM
  10. MECLIZINE [Concomitant]
     Active Substance: MECLIZINE HYDROCHLORIDE
  11. SYSTANE (HYPROMELLOSE 2910 (4000 MPA.S)) [Concomitant]
     Active Substance: HYPROMELLOSE 2910 (4000 MPA.S)
  12. SODIUM CHLORIDE. [Concomitant]
     Active Substance: SODIUM CHLORIDE
  13. BONIVA [Concomitant]
     Active Substance: IBANDRONATE SODIUM
  14. ZEMAIRA [Suspect]
     Active Substance: .ALPHA.1-PROTEINASE INHIBITOR HUMAN
     Indication: ALPHA-1 ANTI-TRYPSIN DEFICIENCY
     Route: 042
     Dates: start: 20050901
  15. SINGULAIR [Concomitant]
     Active Substance: MONTELUKAST SODIUM
  16. COMBIVENT [Concomitant]
     Active Substance: ALBUTEROL SULFATE\IPRATROPIUM BROMIDE
  17. ROBITUSSIN (GUAIFENESIN) [Concomitant]
     Active Substance: GUAIFENESIN
  18. SINEMET [Concomitant]
     Active Substance: CARBIDOPA\LEVODOPA
  19. EPIPEN [Concomitant]
     Active Substance: EPINEPHRINE
  20. PRAMIPEXOLE. [Concomitant]
     Active Substance: PRAMIPEXOLE
  21. CARBIDOPA. [Concomitant]
     Active Substance: CARBIDOPA
  22. XOLAIR [Concomitant]
     Active Substance: OMALIZUMAB
  23. MACRODANTIN [Concomitant]
     Active Substance: NITROFURANTOIN
  24. MIRALAX [Concomitant]
     Active Substance: POLYETHYLENE GLYCOL 3350

REACTIONS (1)
  - Respiratory tract infection [Unknown]
